FAERS Safety Report 10233477 (Version 4)
Quarter: 2014Q4

REPORT INFORMATION
  Report Type: Report from Study
  Country: CA (occurrence: CA)
  Receive Date: 20140612
  Receipt Date: 20141124
  Transmission Date: 20150528
  Serious: Yes (Hospitalization, Other)
  Sender: FDA-Public Use
  Company Number: PHHY2009CA34061

PATIENT
  Age: 81 Year
  Sex: Male

DRUGS (3)
  1. PRADAXA [Concomitant]
     Active Substance: DABIGATRAN ETEXILATE MESYLATE
     Dosage: UNK UKN, UNK
  2. SANDOSTATIN LAR DEPOT [Suspect]
     Active Substance: OCTREOTIDE ACETATE
     Indication: CARCINOID TUMOUR
     Dosage: 60 MG, EVERY 3 WEEKS
     Route: 030
     Dates: start: 20090812
  3. OCTREOTIDE [Suspect]
     Active Substance: OCTREOTIDE
     Indication: CARCINOID SYNDROME
     Dosage: UNK UKN, UNK
     Route: 058
     Dates: start: 20090729

REACTIONS (12)
  - Hemiparesis [Recovering/Resolving]
  - Abdominal pain [Unknown]
  - VIIth nerve paralysis [Unknown]
  - Blood pressure systolic increased [Unknown]
  - Gastrointestinal disorder [Unknown]
  - Speech disorder [Recovering/Resolving]
  - Dysarthria [Unknown]
  - Intestinal obstruction [Unknown]
  - Tooth abscess [Unknown]
  - Cerebrovascular accident [Unknown]
  - Blood pressure decreased [Unknown]
  - Heart rate irregular [Unknown]

NARRATIVE: CASE EVENT DATE: 20140422
